FAERS Safety Report 19985816 (Version 2)
Quarter: 2021Q4

REPORT INFORMATION
  Report Type: Spontaneous
  Country: JP (occurrence: JP)
  Receive Date: 20211022
  Receipt Date: 20211029
  Transmission Date: 20220303
  Serious: Yes (Death)
  Sender: FDA-Public Use
  Company Number: JP-ELI_LILLY_AND_COMPANY-JP202110007655AA

PATIENT
  Age: 65 Year
  Sex: Male
  Weight: 79 kg

DRUGS (2)
  1. OLANZAPINE [Suspect]
     Active Substance: OLANZAPINE
     Indication: Schizophrenia
     Route: 048
  2. LEVOMEPROMAZINE [Suspect]
     Active Substance: LEVOMEPROMAZINE
     Indication: Schizophrenia
     Route: 065

REACTIONS (1)
  - Heat illness [Fatal]

NARRATIVE: CASE EVENT DATE: 20170810
